FAERS Safety Report 18375664 (Version 1)
Quarter: 2020Q4

REPORT INFORMATION
  Report Type: Spontaneous
  Country: MX (occurrence: MX)
  Receive Date: 20201013
  Receipt Date: 20201013
  Transmission Date: 20210114
  Serious: Yes (Hospitalization)
  Sender: FDA-Public Use
  Company Number: MX-ROCHE-2692897

PATIENT
  Sex: Male

DRUGS (1)
  1. ROACTEMRA [Suspect]
     Active Substance: TOCILIZUMAB
     Indication: RHEUMATOID ARTHRITIS
     Dosage: DOSE AND FREQUENCY WERE NOT REPORTED
     Route: 065

REACTIONS (3)
  - Haemorrhage [Unknown]
  - Malaise [Unknown]
  - Asthenia [Unknown]

NARRATIVE: CASE EVENT DATE: 20201006
